FAERS Safety Report 9315291 (Version 1)
Quarter: 2013Q2

REPORT INFORMATION
  Report Type: Spontaneous
  Country: US (occurrence: US)
  Receive Date: 20130529
  Receipt Date: 20130529
  Transmission Date: 20140414
  Serious: No
  Sender: FDA-Public Use
  Company Number: US-BAYER-2013-057855

PATIENT
  Sex: Female

DRUGS (1)
  1. ULTRAVIST INJECTION [Suspect]

REACTIONS (4)
  - Sneezing [None]
  - Dyspnoea [None]
  - Nasal congestion [None]
  - Dizziness [None]
